FAERS Safety Report 7373868-7 (Version None)
Quarter: 2011Q1

REPORT INFORMATION
  Report Type: 
  Country: None (occurrence: None)
  Receive Date: 20110325
  Receipt Date: 20110316
  Transmission Date: 20110831
  Serious: Yes (Other)
  Sender: FDA-Public Use
  Company Number: US-PFIZER INC-2011057380

PATIENT
  Sex: Female
  Weight: 54.422 kg

DRUGS (2)
  1. CENTRUM [Concomitant]
     Dosage: UNK
  2. CELEBREX [Suspect]
     Indication: CARPAL TUNNEL SYNDROME
     Dosage: 200 MG, 2X/DAY
     Route: 048
     Dates: start: 20110225, end: 20110304

REACTIONS (6)
  - THROAT IRRITATION [None]
  - YELLOW SKIN [None]
  - HEADACHE [None]
  - DYSPNOEA [None]
  - FATIGUE [None]
  - ARTHRALGIA [None]
